FAERS Safety Report 7823547-4 (Version None)
Quarter: 2011Q4

REPORT INFORMATION
  Report Type: 
  Country: None (occurrence: None)
  Receive Date: 20111019
  Receipt Date: 20111004
  Transmission Date: 20120403
  Serious: Yes (Hospitalization)
  Sender: FDA-Public Use
  Company Number: FR-CELGENEUS-056-21880-11100363

PATIENT
  Sex: Male

DRUGS (3)
  1. REVLIMID [Suspect]
     Route: 048
     Dates: start: 20110516
  2. DEXAMETHASONE [Suspect]
     Route: 065
     Dates: start: 20110516
  3. BORTEZOMIB [Suspect]
     Route: 065
     Dates: start: 20110516

REACTIONS (1)
  - NERVOUS SYSTEM DISORDER [None]
